FAERS Safety Report 9335516 (Version 1)
Quarter: 2013Q2

REPORT INFORMATION
  Report Type: Spontaneous
  Country: US (occurrence: US)
  Receive Date: 20130605
  Receipt Date: 20130605
  Transmission Date: 20140414
  Serious: Yes (Hospitalization)
  Sender: FDA-Public Use
  Company Number: US-GLAXOSMITHKLINE-A0789238A

PATIENT
  Age: 63 Year
  Sex: Female
  Weight: 193.2 kg

DRUGS (1)
  1. AVANDIA [Suspect]
     Indication: TYPE 2 DIABETES MELLITUS
     Route: 048
     Dates: start: 1999, end: 20070508

REACTIONS (2)
  - Cardiac failure congestive [Not Recovered/Not Resolved]
  - Fluid imbalance [Unknown]
